FAERS Safety Report 20042173 (Version 6)
Quarter: 2022Q1

REPORT INFORMATION
  Report Type: Report from Study
  Country: US (occurrence: US)
  Receive Date: 20211108
  Receipt Date: 20220122
  Transmission Date: 20220424
  Serious: Yes (Other)
  Sender: FDA-Public Use
  Company Number: US-NOVARTISTESTPH-NVSC2021US253750

PATIENT
  Sex: Male

DRUGS (3)
  1. ENTRESTO [Suspect]
     Active Substance: SACUBITRIL\VALSARTAN
     Indication: Product used for unknown indication
     Dosage: 50 MG, BID, (24/26) (FROM AN YEAR AGO)
     Route: 048
  2. ENTRESTO [Suspect]
     Active Substance: SACUBITRIL\VALSARTAN
     Dosage: UNK
     Route: 065
     Dates: start: 202111
  3. ENTRESTO [Suspect]
     Active Substance: SACUBITRIL\VALSARTAN
     Dosage: UNK
     Route: 048

REACTIONS (7)
  - Ejection fraction decreased [Unknown]
  - Hypertension [Recovered/Resolved]
  - Weight decreased [Not Recovered/Not Resolved]
  - Trigger finger [Recovering/Resolving]
  - Carpal tunnel syndrome [Recovering/Resolving]
  - Cough [Not Recovered/Not Resolved]
  - Nausea [Recovered/Resolved]
